FAERS Safety Report 7111942-0 (Version None)
Quarter: 2010Q4

REPORT INFORMATION
  Report Type: 
  Country: None (occurrence: None)
  Receive Date: 20101119
  Receipt Date: 20101117
  Transmission Date: 20110411
  Serious: Yes (Hospitalization, Other)
  Sender: FDA-Public Use
  Company Number: GB-SHIRE-SPV1-2010-00467

PATIENT

DRUGS (3)
  1. MEZAVANT XL [Suspect]
     Indication: COLITIS ULCERATIVE
     Dosage: 2.4 G, UNK
     Route: 065
  2. MEZAVANT XL [Suspect]
     Dosage: 4.8 G, UNK
     Route: 065
  3. CORTICOSTEROID NOS [Suspect]
     Indication: COLITIS ULCERATIVE
     Dosage: UNK, UNKNOWN
     Route: 065

REACTIONS (3)
  - PANCREATITIS [None]
  - PYREXIA [None]
  - STEVENS-JOHNSON SYNDROME [None]
